FAERS Safety Report 17824542 (Version 2)
Quarter: 2020Q2

REPORT INFORMATION
  Report Type: Report from Study
  Country: DE (occurrence: DE)
  Receive Date: 20200526
  Receipt Date: 20200625
  Transmission Date: 20200714
  Serious: Yes (Hospitalization, Other)
  Sender: FDA-Public Use
  Company Number: NVSC2020DE139329

PATIENT
  Age: 67 Year
  Sex: Female
  Weight: 69 kg

DRUGS (1)
  1. BYL719 [Suspect]
     Active Substance: ALPELISIB
     Indication: BREAST CANCER
     Dosage: 300 MG, QD
     Route: 048
     Dates: start: 20200207, end: 20200430

REACTIONS (5)
  - Cholestasis [Recovered/Resolved with Sequelae]
  - Bile duct stenosis [Unknown]
  - Metastases to liver [Unknown]
  - Inflammation [Recovered/Resolved with Sequelae]
  - Hepatic enzyme increased [Recovered/Resolved with Sequelae]

NARRATIVE: CASE EVENT DATE: 20200507
